FAERS Safety Report 7345560-6 (Version None)
Quarter: 2011Q1

REPORT INFORMATION
  Report Type: 
  Country: None (occurrence: None)
  Receive Date: 20110310
  Receipt Date: 20110228
  Transmission Date: 20110831
  Serious: Yes (Other)
  Sender: FDA-Public Use
  Company Number: BR-GILEAD-2011-0036997

PATIENT
  Sex: Male
  Weight: 60.6 kg

DRUGS (11)
  1. LAMIVUDINE [Suspect]
     Indication: HIV INFECTION
     Dates: start: 20110210
  2. POTASSIUM DICLOFENAC [Concomitant]
     Indication: SINUSITIS
     Dates: start: 20110217
  3. AZITHROMYCIN [Concomitant]
     Indication: SINUSITIS
     Dates: start: 20110217
  4. ETHAMBUTOL HYDROCHLORIDE [Concomitant]
     Indication: TUBERCULOSIS
     Dates: start: 20101216
  5. DEXCHLORPHENIRAMINE MALEATE [Concomitant]
     Indication: SINUSITIS
     Dates: start: 20110217
  6. PYRAZINAMIDE [Concomitant]
     Indication: TUBERCULOSIS
     Dates: start: 20101216
  7. VIREAD [Suspect]
     Indication: HIV INFECTION
     Dates: start: 20110210
  8. VITAMIN B6 [Concomitant]
  9. RALTEGRAVIR [Suspect]
     Indication: HIV INFECTION
     Dates: start: 20110210
  10. ISONIAZID [Concomitant]
     Indication: TUBERCULOSIS
     Dates: start: 20101216
  11. RIFAMPICIN [Concomitant]
     Indication: TUBERCULOSIS
     Dates: start: 20101216

REACTIONS (1)
  - SEPSIS [None]
